FAERS Safety Report 9663779 (Version 1)
Quarter: 2013Q4

REPORT INFORMATION
  Report Type: Spontaneous
  Country: US (occurrence: None)
  Receive Date: 20131030
  Receipt Date: 20131030
  Transmission Date: 20140711
  Serious: Yes (Hospitalization)
  Sender: FDA-Public Use
  Company Number: None

PATIENT
  Age: 58 Year
  Sex: Male

DRUGS (3)
  1. BUPROPION XL [Suspect]
     Indication: DEPRESSION
     Dosage: TAKEN BY MOUTH
     Dates: start: 20061101, end: 20130830
  2. BUPROPION XL [Suspect]
     Indication: ANXIETY
     Dosage: TAKEN BY MOUTH
     Dates: start: 20061101, end: 20130830
  3. ESCITALOPRAM [Suspect]
     Dosage: TAKEN BY MOUTH
     Dates: start: 20071101, end: 20130826

REACTIONS (2)
  - Therapeutic response unexpected with drug substitution [None]
  - Product substitution issue [None]
